FAERS Safety Report 7207698-3 (Version None)
Quarter: 2011Q1

REPORT INFORMATION
  Report Type: 
  Country: None (occurrence: None)
  Receive Date: 20110103
  Receipt Date: 20101223
  Transmission Date: 20110831
  Serious: Yes (Other)
  Sender: FDA-Public Use
  Company Number: US-PFIZER INC-2010179478

PATIENT
  Sex: Male

DRUGS (2)
  1. GLUCOTROL [Suspect]
     Dosage: UNK
  2. METFORMIN HCL [Suspect]
     Dosage: UNK

REACTIONS (1)
  - BLOOD GLUCOSE FLUCTUATION [None]
